FAERS Safety Report 23496689 (Version 1)
Quarter: 2024Q1

REPORT INFORMATION
  Report Type: Spontaneous
  Country: US (occurrence: None)
  Receive Date: 20240207
  Receipt Date: 20240207
  Transmission Date: 20240409
  Serious: Yes (Other)
  Sender: FDA-Public Use
  Company Number: None

PATIENT
  Age: 68 Year
  Sex: Male

DRUGS (1)
  1. OFEV [Suspect]
     Active Substance: NINTEDANIB
     Indication: Idiopathic pulmonary fibrosis
     Dosage: FREQUENCY : DAILY;?
     Route: 048
     Dates: start: 20231107, end: 20240124

REACTIONS (4)
  - Gastrointestinal disorder [None]
  - Nausea [None]
  - Haemoptysis [None]
  - Throat irritation [None]

NARRATIVE: CASE EVENT DATE: 20240207
